FAERS Safety Report 13504095 (Version 2)
Quarter: 2017Q3

REPORT INFORMATION
  Report Type: Spontaneous
  Country: US (occurrence: US)
  Receive Date: 20170502
  Receipt Date: 20170925
  Transmission Date: 20171127
  Serious: No
  Sender: FDA-Public Use
  Company Number: US-PFIZER INC-2017190371

PATIENT

DRUGS (7)
  1. CISPLATIN. [Suspect]
     Active Substance: CISPLATIN
     Indication: HEPATIC CANCER
     Dosage: UNK
     Route: 065
     Dates: start: 20160919, end: 201611
  2. FOLINIC ACID [Suspect]
     Active Substance: LEUCOVORIN
     Indication: HEPATIC CANCER
     Dosage: UNK
     Route: 065
     Dates: start: 201611, end: 201701
  3. FLUOROURACIL. [Suspect]
     Active Substance: FLUOROURACIL
     Indication: HEPATIC CANCER
     Dosage: UNK
     Route: 065
     Dates: start: 201611, end: 201701
  4. OXALIPLATIN. [Suspect]
     Active Substance: OXALIPLATIN
     Indication: HEPATIC CANCER
     Dosage: UNK
     Route: 065
     Dates: start: 201611, end: 201701
  5. GEMZAR [Suspect]
     Active Substance: GEMCITABINE HYDROCHLORIDE
     Dosage: UNK
     Route: 065
     Dates: start: 20170126, end: 201704
  6. GEMZAR [Suspect]
     Active Substance: GEMCITABINE HYDROCHLORIDE
     Indication: HEPATIC CANCER
     Dosage: UNK
     Route: 065
     Dates: start: 20160919, end: 201611
  7. IRINOTECAN HCL [Suspect]
     Active Substance: IRINOTECAN HYDROCHLORIDE
     Indication: HEPATIC CANCER
     Dosage: UNK
     Route: 065
     Dates: start: 201611, end: 201701

REACTIONS (1)
  - Neoplasm progression [Unknown]
